FAERS Safety Report 7057850-5 (Version None)
Quarter: 2010Q4

REPORT INFORMATION
  Report Type: 
  Country: None (occurrence: None)
  Receive Date: 20101022
  Receipt Date: 20101011
  Transmission Date: 20110411
  Serious: Yes (Other)
  Sender: FDA-Public Use
  Company Number: US-PFIZER INC-2010096074

PATIENT
  Sex: Female
  Weight: 77.11 kg

DRUGS (7)
  1. LYRICA [Suspect]
     Indication: FIBROMYALGIA
     Dosage: 75 MG, DAILY
     Dates: start: 20080701, end: 20100901
  2. VICODIN [Concomitant]
     Dosage: AS NEEDED
  3. LISINOPRIL [Concomitant]
     Dosage: UNK
  4. AMIODARONE [Concomitant]
     Dosage: UNK
  5. LIPITOR [Concomitant]
     Dosage: UNK
  6. CALCIUM WITH VITAMIN D [Concomitant]
     Dosage: UNK
  7. IBANDRONATE SODIUM [Concomitant]
     Dosage: UNK

REACTIONS (4)
  - ISCHAEMIA [None]
  - MEMORY IMPAIRMENT [None]
  - MIGRAINE [None]
  - SINUSITIS [None]
